FAERS Safety Report 9154949 (Version 2)
Quarter: 2013Q2

REPORT INFORMATION
  Report Type: Report from Study
  Country: US (occurrence: US)
  Receive Date: 20130311
  Receipt Date: 20130506
  Transmission Date: 20140414
  Serious: Yes (Hospitalization)
  Sender: FDA-Public Use
  Company Number: US-ASTRAZENECA-2013SE09595

PATIENT
  Age: 27072 Day
  Sex: Male
  Weight: 96.2 kg

DRUGS (3)
  1. VANDETANIB [Suspect]
     Indication: SMALL CELL LUNG CANCER
     Route: 048
     Dates: start: 20130128
  2. CARBOPLATIN [Suspect]
     Indication: SMALL CELL LUNG CANCER
     Route: 042
     Dates: start: 20130128
  3. ETOPOSIDE [Suspect]
     Indication: SMALL CELL LUNG CANCER
     Dosage: 225 MG DAY 1, 2, 3 EVERY 21 DAYS
     Route: 042
     Dates: start: 20130128

REACTIONS (1)
  - Pancytopenia [Recovered/Resolved]
